FAERS Safety Report 10057841 (Version 1)
Quarter: 2014Q1

REPORT INFORMATION
  Report Type: Spontaneous
  Country: MX (occurrence: None)
  Receive Date: 20140318
  Receipt Date: 20140318
  Transmission Date: 20141002
  Serious: Yes (Death)
  Sender: FDA-Public Use
  Company Number: IG002138

PATIENT
  Age: 1 Day
  Sex: Male
  Weight: 2.87 kg

DRUGS (2)
  1. HUMAN NORMAL IMMUNOGLOBULIN [Suspect]
     Indication: RHESUS HAEMOLYTIC DISEASE OF NEWBORN
     Route: 042
     Dates: start: 20130901, end: 20130902
  2. GLUCOSE SOLUTION [Concomitant]

REACTIONS (7)
  - Abdominal distension [None]
  - Pain [None]
  - Hypoglycaemia [None]
  - Respiratory disorder [None]
  - General physical health deterioration [None]
  - Intestinal perforation [None]
  - Enterocolitis [None]
